FAERS Safety Report 9322255 (Version 2)
Quarter: 2013Q3

REPORT INFORMATION
  Report Type: Spontaneous
  Country: TR (occurrence: TR)
  Receive Date: 20130531
  Receipt Date: 20130822
  Transmission Date: 20140515
  Serious: Yes (Hospitalization)
  Sender: FDA-Public Use
  Company Number: TR-ABBOTT-13P-161-1068541-00

PATIENT
  Age: 32 Year
  Sex: Female
  Weight: 50 kg

DRUGS (2)
  1. HUMIRA [Suspect]
     Indication: CROHN^S DISEASE
     Route: 058
     Dates: start: 20130222, end: 20130311
  2. SINEKORT [Concomitant]
     Indication: PRODUCT USED FOR UNKNOWN INDICATION

REACTIONS (3)
  - Cough [Recovering/Resolving]
  - Eosinophilic pneumonia [Recovering/Resolving]
  - B-cell lymphoma [Not Recovered/Not Resolved]
